FAERS Safety Report 24573226 (Version 2)
Quarter: 2024Q4

REPORT INFORMATION
  Report Type: Spontaneous
  Country: JP (occurrence: JP)
  Receive Date: 20241101
  Receipt Date: 20241111
  Transmission Date: 20250115
  Serious: Yes (Hospitalization)
  Sender: CARA THERAPEUTICS
  Company Number: JP-CARA THERAPEUTICS, INC.-2024-00403-JP

PATIENT
  Age: 73 Year
  Sex: Male

DRUGS (15)
  1. KORSUVA [Suspect]
     Active Substance: DIFELIKEFALIN ACETATE
     Indication: Pruritus
     Dosage: 25 ?G (25 ?G/   )
     Route: 042
     Dates: start: 20240402, end: 20240418
  2. VONOPRAZAN FUMARATE [Concomitant]
     Active Substance: VONOPRAZAN FUMARATE
  3. ROZEREM [Concomitant]
     Active Substance: RAMELTEON
  4. BROTIZOLAM [Concomitant]
     Active Substance: BROTIZOLAM
  5. AZOSEMIDE [Concomitant]
     Active Substance: AZOSEMIDE
  6. SENNOSIDES [Concomitant]
     Active Substance: SENNOSIDES
  7. CARVEDILOL [Concomitant]
     Active Substance: CARVEDILOL
  8. SAMSCA [Concomitant]
     Active Substance: TOLVAPTAN
  9. LINZESS [Concomitant]
     Active Substance: LINACLOTIDE
  10. AMEZINIUM METILSULFATE [Concomitant]
     Active Substance: AMEZINIUM METILSULFATE
  11. FEXOFENADINE HYDROCHLORIDE [Concomitant]
     Active Substance: FEXOFENADINE HYDROCHLORIDE
  12. ZINC [Concomitant]
     Active Substance: ZINC
  13. HERBALS [Concomitant]
     Active Substance: HERBALS
  14. HUMALOG [Concomitant]
     Active Substance: INSULIN LISPRO
  15. LANTUS [Concomitant]
     Active Substance: INSULIN GLARGINE

REACTIONS (1)
  - Blood pressure decreased [Recovered/Resolved]

NARRATIVE: CASE EVENT DATE: 20240413
